FAERS Safety Report 5541664-9 (Version None)
Quarter: 2007Q4

REPORT INFORMATION
  Report Type: 
  Country: None (occurrence: None)
  Receive Date: 20071210
  Receipt Date: 20071126
  Transmission Date: 20080405
  Serious: Yes (Hospitalization, Other)
  Sender: FDA-Public Use
  Company Number: US-AMGEN-US253351

PATIENT
  Sex: Female

DRUGS (19)
  1. ARANESP [Suspect]
     Indication: DIALYSIS
     Route: 058
     Dates: start: 20070530, end: 20071120
  2. ZOFRAN [Concomitant]
     Route: 065
  3. BISACODYL [Concomitant]
     Route: 065
  4. LEVAQUIN [Concomitant]
     Route: 065
  5. NEXIUM [Concomitant]
     Route: 065
  6. FOLIC ACID [Concomitant]
     Route: 065
  7. LOPRESSOR [Concomitant]
     Route: 047
     Dates: start: 20071107
  8. POTASSIUM CHLORIDE [Concomitant]
     Route: 048
     Dates: start: 20071111
  9. MAALOX [Concomitant]
     Route: 065
  10. MAGNESIUM SULFATE [Concomitant]
     Route: 065
  11. SPIRONOLACTONE [Concomitant]
     Dates: start: 20071107, end: 20071108
  12. MYLANTA [Concomitant]
     Route: 048
  13. ASPIRIN [Concomitant]
     Route: 048
  14. MUPIROCIN [Concomitant]
     Route: 061
  15. VITAMIN CAP [Concomitant]
  16. COLACE [Concomitant]
  17. CLARITIN [Concomitant]
     Route: 048
  18. PREVACID [Concomitant]
     Route: 048
  19. TYLENOL [Concomitant]
     Route: 048

REACTIONS (13)
  - APLASIA PURE RED CELL [None]
  - C-REACTIVE PROTEIN INCREASED [None]
  - CELLULITIS [None]
  - COLONIC POLYP [None]
  - DYSPHAGIA [None]
  - EROSIVE OESOPHAGITIS [None]
  - HAEMOGLOBIN INCREASED [None]
  - HYPOKALAEMIA [None]
  - HYPOPHOSPHATAEMIA [None]
  - MALNUTRITION [None]
  - PLEURAL EFFUSION [None]
  - RETICULOCYTE COUNT DECREASED [None]
  - SKIN ULCER [None]
